FAERS Safety Report 9682217 (Version 1)
Quarter: 2013Q4

REPORT INFORMATION
  Report Type: Report from Study
  Country: FR (occurrence: FR)
  Receive Date: 20131111
  Receipt Date: 20131111
  Transmission Date: 20140711
  Serious: Yes (Death)
  Sender: FDA-Public Use
  Company Number: FR-TEVA-442055ISR

PATIENT
  Age: 75 Year
  Sex: Male

DRUGS (1)
  1. EFFENTORA [Suspect]

REACTIONS (2)
  - Death [Fatal]
  - Hallucination [Unknown]
